FAERS Safety Report 16341294 (Version 3)
Quarter: 2021Q2

REPORT INFORMATION
  Report Type: Spontaneous
  Country: GR (occurrence: GR)
  Receive Date: 20190522
  Receipt Date: 20210515
  Transmission Date: 20210716
  Serious: Yes (Other)
  Sender: FDA-Public Use
  Company Number: PHHY2019GR112080

PATIENT
  Age: 81 Year
  Sex: Male

DRUGS (6)
  1. NINTEDANIB [Concomitant]
     Active Substance: NINTEDANIB
     Indication: NON-SMALL CELL LUNG CANCER STAGE IV
     Dosage: 400 MILLIGRAM DAILY
     Route: 048
  2. PEMETREXED. [Suspect]
     Active Substance: PEMETREXED
     Indication: LUNG ADENOCARCINOMA STAGE IV
     Dosage: 500 MG/M2, CYCLIC (500 MG/M2, QCY)
     Route: 065
  3. DOCETAXEL. [Suspect]
     Active Substance: DOCETAXEL
     Indication: NON-SMALL CELL LUNG CANCER STAGE IV
     Dosage: 75 MG/M2, CYCLIC (75 MG/M2, QCY)
     Route: 065
  4. NINTEDANIB [Concomitant]
     Active Substance: NINTEDANIB
     Dosage: 200 MG, BID
     Route: 065
  5. CARBOPLATIN. [Suspect]
     Active Substance: CARBOPLATIN
     Indication: LUNG ADENOCARCINOMA STAGE IV
     Dosage: UNK, CYCLIC
     Route: 065
  6. NINTEDANIB [Concomitant]
     Active Substance: NINTEDANIB
     Indication: LUNG ADENOCARCINOMA STAGE IV
     Dosage: 200 MG, QD
     Route: 065

REACTIONS (6)
  - Polymyositis [Unknown]
  - Drug tolerance [Recovered/Resolved]
  - Neoplasm progression [Unknown]
  - Dermatomyositis [Unknown]
  - Performance status decreased [Recovered/Resolved]
  - General physical health deterioration [Recovered/Resolved]
